FAERS Safety Report 9197820 (Version 1)
Quarter: 2013Q1

REPORT INFORMATION
  Report Type: Report from Study
  Country: US (occurrence: US)
  Receive Date: 20130328
  Receipt Date: 20130328
  Transmission Date: 20140127
  Serious: Yes (Hospitalization)
  Sender: FDA-Public Use
  Company Number: US-ABBOTT-13P-163-1065451-00

PATIENT
  Age: 36 Year
  Sex: Male

DRUGS (1)
  1. HUMIRA [Suspect]
     Indication: CROHN^S DISEASE
     Dates: start: 2010

REACTIONS (11)
  - Hospitalisation [Unknown]
  - Activities of daily living impaired [Unknown]
  - Weight abnormal [Unknown]
  - Fatigue [Unknown]
  - Asthenia [Unknown]
  - Impaired work ability [Unknown]
  - Depression [Unknown]
  - Stress [Unknown]
  - Abdominal pain upper [Unknown]
  - Injection site pain [Unknown]
  - Injection site pain [Unknown]
